FAERS Safety Report 5324059-2 (Version None)
Quarter: 2007Q2

REPORT INFORMATION
  Report Type: 
  Country: None (occurrence: None)
  Receive Date: 20070514
  Receipt Date: 20070507
  Transmission Date: 20071010
  Serious: Yes (Hospitalization)
  Sender: FDA-Public Use
  Company Number: JP-ABBOTT-07P-087-0367509-00

PATIENT
  Age: 66 Year
  Sex: Female

DRUGS (10)
  1. NORVIR [Suspect]
     Indication: HIV INFECTION
     Route: 048
     Dates: start: 20060508, end: 20060522
  2. ABACAVIR SULFATE [Suspect]
     Indication: HIV INFECTION
     Route: 048
     Dates: start: 20060508, end: 20060522
  3. LAMIVUDINE [Concomitant]
     Indication: HIV INFECTION
     Route: 048
     Dates: start: 20060401, end: 20060507
  4. LAMIVUDINE [Concomitant]
     Route: 048
     Dates: start: 20060508, end: 20060522
  5. LAMIVUDINE [Concomitant]
     Route: 048
     Dates: start: 20060531
  6. ZIDOVUDINE [Concomitant]
     Indication: HIV INFECTION
     Route: 048
     Dates: start: 20060531
  7. ATAZANAVIR SULFATE [Concomitant]
     Indication: HIV INFECTION
     Route: 048
     Dates: start: 20060401, end: 20060507
  8. ATAZANAVIR SULFATE [Concomitant]
     Route: 048
     Dates: start: 20060508, end: 20060522
  9. ATAZANAVIR SULFATE [Concomitant]
     Route: 048
     Dates: start: 20060531
  10. AMLODIPINE BESYLATE [Concomitant]
     Indication: HYPERTENSION
     Route: 048
     Dates: start: 20060401, end: 20060425

REACTIONS (2)
  - DRUG ERUPTION [None]
  - TOXIC SKIN ERUPTION [None]
